FAERS Safety Report 5959685-0 (Version None)
Quarter: 2008Q4

REPORT INFORMATION
  Report Type: 
  Country: None (occurrence: None)
  Receive Date: 20081110
  Receipt Date: 20080912
  Transmission Date: 20090506
  Serious: No
  Sender: FDA-Public Use
  Company Number: 2008US002158

PATIENT
  Age: 83 Year
  Sex: Female
  Weight: 64.9 kg

DRUGS (3)
  1. LEXISCAN [Suspect]
     Indication: SCAN MYOCARDIAL PERFUSION
     Dosage: 0.4 MG
     Dates: start: 20080812, end: 20080812
  2. ALBUTEROL (SALBUTAMOL SULFATE) [Concomitant]
  3. LASIX [Concomitant]

REACTIONS (4)
  - DIZZINESS [None]
  - HEART RATE ABNORMAL [None]
  - NAUSEA [None]
  - VOMITING [None]
